FAERS Safety Report 22400507 (Version 1)
Quarter: 2023Q2

REPORT INFORMATION
  Report Type: Spontaneous
  Country: US (occurrence: US)
  Receive Date: 20230602
  Receipt Date: 20230602
  Transmission Date: 20230722
  Serious: Yes (Other)
  Sender: FDA-Public Use
  Company Number: US-MYLANLABS-2023M1056178

PATIENT
  Age: 78 Year
  Sex: Male

DRUGS (5)
  1. ETHACRYNATE SODIUM [Suspect]
     Active Substance: ETHACRYNATE SODIUM
     Indication: Product used for unknown indication
     Dosage: UNK
     Route: 065
  2. MAGNESIUM [Suspect]
     Active Substance: MAGNESIUM
     Indication: Diarrhoea
     Dosage: UNK
     Route: 065
  3. ASCORBIC ACID [Suspect]
     Active Substance: ASCORBIC ACID
     Indication: Diarrhoea
     Dosage: UNK
     Route: 065
  4. VITAMIN E [Suspect]
     Active Substance: .ALPHA.-TOCOPHEROL
     Indication: Diarrhoea
     Dosage: UNK
     Route: 065
  5. LOSARTAN [Concomitant]
     Active Substance: LOSARTAN
     Indication: Hypertension
     Dosage: UNK
     Route: 065

REACTIONS (5)
  - Anti-transglutaminase antibody negative [Recovered/Resolved]
  - Diarrhoea [Recovered/Resolved]
  - Drug ineffective for unapproved indication [Unknown]
  - Coeliac disease [Recovered/Resolved]
  - Off label use [Unknown]
